FAERS Safety Report 19844537 (Version 2)
Quarter: 2022Q1

REPORT INFORMATION
  Report Type: Spontaneous
  Country: US (occurrence: US)
  Receive Date: 20210916
  Receipt Date: 20220109
  Transmission Date: 20220424
  Serious: Yes (Other)
  Sender: FDA-Public Use
  Company Number: US-AMGEN-USASP2021139708

PATIENT
  Age: 67 Year
  Sex: Male

DRUGS (5)
  1. CINACALCET HYDROCHLORIDE [Suspect]
     Active Substance: CINACALCET HYDROCHLORIDE
     Indication: Hyperparathyroidism secondary
     Dosage: 30 MILLIGRAM, BID
     Route: 065
  2. EPOETIN ALFA [Suspect]
     Active Substance: ERYTHROPOIETIN
     Indication: Anaemia
     Dosage: 20000 INTERNATIONAL UNIT, 3 TIMES/WK
     Route: 065
  3. CALCITRIOL [Concomitant]
     Active Substance: CALCITRIOL
     Dosage: 0.25 MILLIGRAM, QD
  4. CALCIUM ACETATE [Concomitant]
     Active Substance: CALCIUM ACETATE
     Dosage: 667 MILLIGRAM, TID
  5. SEVELAMER [Concomitant]
     Active Substance: SEVELAMER
     Dosage: 1600 MILLIGRAM, TID

REACTIONS (3)
  - Refractory cytopenia with unilineage dysplasia [Unknown]
  - Bone marrow reticulin fibrosis [Unknown]
  - Therapeutic product effect incomplete [Unknown]
